FAERS Safety Report 20647342 (Version 1)
Quarter: 2022Q1

REPORT INFORMATION
  Report Type: Spontaneous
  Country: ZA (occurrence: ZA)
  Receive Date: 20220329
  Receipt Date: 20220329
  Transmission Date: 20220423
  Serious: Yes (Hospitalization, Other)
  Sender: FDA-Public Use
  Company Number: ZA-ABBVIE-22K-143-4335264-00

PATIENT
  Age: 45 Year
  Sex: Male

DRUGS (5)
  1. VALPROATE SODIUM [Suspect]
     Active Substance: VALPROATE SODIUM
     Indication: Bipolar disorder
     Dosage: 20-25 TABLET
     Route: 048
     Dates: start: 20201005, end: 20201005
  2. VALPROATE SODIUM [Suspect]
     Active Substance: VALPROATE SODIUM
     Indication: Suicide attempt
     Route: 048
     Dates: start: 20200908, end: 20201005
  3. LAMOTRIGINE [Concomitant]
     Active Substance: LAMOTRIGINE
     Indication: Product used for unknown indication
     Dates: start: 20200908
  4. QUETIAPINE [Concomitant]
     Active Substance: QUETIAPINE
     Indication: Product used for unknown indication
     Dates: start: 2020
  5. OLANZAPINE [Concomitant]
     Active Substance: OLANZAPINE
     Indication: Product used for unknown indication

REACTIONS (5)
  - Suicide attempt [Unknown]
  - Encephalopathy [Recovered/Resolved]
  - Confusional state [Unknown]
  - Intentional overdose [Unknown]
  - Agitation [Unknown]

NARRATIVE: CASE EVENT DATE: 20201005
